FAERS Safety Report 18810995 (Version 2)
Quarter: 2021Q1

REPORT INFORMATION
  Report Type: Spontaneous
  Country: US (occurrence: US)
  Receive Date: 20210129
  Receipt Date: 20210324
  Transmission Date: 20210419
  Serious: Yes (Hospitalization, Other)
  Sender: FDA-Public Use
  Company Number: US-ELI_LILLY_AND_COMPANY-US202101007496

PATIENT
  Age: 59 Year
  Sex: Female
  Weight: 108.6 kg

DRUGS (3)
  1. DECADRON [Concomitant]
     Active Substance: DEXAMETHASONE
     Indication: PRODUCT USED FOR UNKNOWN INDICATION
     Dosage: UNK UNK, UNKNOWN
     Route: 065
     Dates: start: 20201217, end: 20210114
  2. REMDESIVIR. [Concomitant]
     Active Substance: REMDESIVIR
     Indication: PRODUCT USED FOR UNKNOWN INDICATION
     Dosage: UNK, UNKNOWN
     Route: 065
     Dates: start: 20201217, end: 20201221
  3. BARICITINIB. [Suspect]
     Active Substance: BARICITINIB
     Indication: COVID-19
     Dosage: 4 MG, DAILY
     Route: 048
     Dates: start: 20201221, end: 20201227

REACTIONS (13)
  - Acute kidney injury [Unknown]
  - Dysphagia [Unknown]
  - Splenomegaly [Unknown]
  - Ankylosing spondylitis [Unknown]
  - Staphylococcal infection [Unknown]
  - Hypercalcaemia [Unknown]
  - Pneumonia [Unknown]
  - Pulmonary cavitation [Unknown]
  - Osteosclerosis [Unknown]
  - Pericardial effusion [Unknown]
  - Hyperkalaemia [Unknown]
  - Respiratory failure [Unknown]
  - Hyperparathyroidism [Unknown]

NARRATIVE: CASE EVENT DATE: 20201226
